FAERS Safety Report 13456369 (Version 3)
Quarter: 2017Q2

REPORT INFORMATION
  Report Type: Report from Study
  Country: JP (occurrence: JP)
  Receive Date: 20170419
  Receipt Date: 20170526
  Transmission Date: 20170830
  Serious: Yes (Death, Hospitalization)
  Sender: FDA-Public Use
  Company Number: JP-ASTRAZENECA-2017SE27516

PATIENT
  Age: 89 Year
  Sex: Male
  Weight: 35 kg

DRUGS (10)
  1. TAGRISSO [Suspect]
     Active Substance: OSIMERTINIB
     Indication: NON-SMALL CELL LUNG CANCER
     Route: 048
     Dates: start: 20170223, end: 20170307
  2. CILOSTAZOL. [Concomitant]
     Active Substance: CILOSTAZOL
     Indication: CEREBRAL INFARCTION
     Dosage: 200 MG, NUMBER OF SEPARATE DOSAGES UNKNOWN
     Route: 048
     Dates: end: 20170311
  3. SENNOSIDE [Concomitant]
     Active Substance: SENNOSIDES
     Indication: CONSTIPATION
     Dosage: REQUIRED
     Route: 048
  4. LOXOPROFEN SODIUM [Concomitant]
     Active Substance: LOXOPROFEN SODIUM
     Indication: NON-SMALL CELL LUNG CANCER
     Dosage: DOSE UNKNOWN, AS REQUIRED
     Route: 048
     Dates: start: 20170306, end: 20170311
  5. SPLENDIL [Concomitant]
     Active Substance: FELODIPINE
     Indication: HYPERTENSION
     Dosage: 5 MG, NUMBER OF SEPARATE DOSAGES UNKNOWN
     Route: 048
     Dates: end: 20170311
  6. SENNOSIDE [Concomitant]
     Active Substance: SENNOSIDES
     Indication: CONSTIPATION
     Dosage: DOSE UNKNOWN, AS REQUIRED
     Route: 048
     Dates: end: 20170311
  7. NESINA [Concomitant]
     Active Substance: ALOGLIPTIN BENZOATE
     Indication: DIABETES MELLITUS
     Route: 048
     Dates: end: 20170311
  8. CEROCRAL [Concomitant]
     Active Substance: IFENPRODIL
     Indication: CEREBRAL INFARCTION
     Dosage: 20 MG EVERY DAY, AS REQUIRED
     Route: 048
     Dates: end: 20170311
  9. BIOFERMIN [Concomitant]
     Active Substance: BACILLUS SUBTILIS\LACTOBACILLUS ACIDOPHILUS\STREPTOCOCCUS FAECAIS
     Indication: ENTEROCOLITIS
     Dosage: 2 G, NUMBER OF SEPARATE DOSAGES UNKNOWN
     Route: 048
     Dates: end: 20170311
  10. NAIXAN [Concomitant]
     Active Substance: NAPROXEN SODIUM
     Indication: CANCER PAIN
     Dosage: 200 MG, NUMBER OF SEPARATE DOSAGES UNKNOWN
     Route: 048
     Dates: end: 20170311

REACTIONS (3)
  - Interstitial lung disease [Fatal]
  - Haemoptysis [Unknown]
  - Pyrexia [Recovered/Resolved]

NARRATIVE: CASE EVENT DATE: 20170305
